FAERS Safety Report 13088972 (Version 1)
Quarter: 2017Q1

REPORT INFORMATION
  Report Type: Spontaneous
  Country: US (occurrence: US)
  Receive Date: 20170104
  Receipt Date: 20170104
  Transmission Date: 20170428
  Serious: Yes (Hospitalization)
  Sender: FDA-Public Use
  Company Number: None

PATIENT
  Age: 77 Year
  Sex: Male
  Weight: 77 kg

DRUGS (1)
  1. METHOTREXATE. [Suspect]
     Active Substance: METHOTREXATE
     Dosage: ?          OTHER FREQUENCY:WEEKLY;?
     Route: 048

REACTIONS (4)
  - Weight decreased [None]
  - Mouth ulceration [None]
  - Dyspnoea exertional [None]
  - Pancytopenia [None]

NARRATIVE: CASE EVENT DATE: 20160909
